FAERS Safety Report 4443923-X (Version None)
Quarter: 2004Q3

REPORT INFORMATION
  Report Type: 
  Country: None (occurrence: None)
  Receive Date: 20040729
  Receipt Date: 20030616
  Transmission Date: 20050211
  Serious: Yes (Other)
  Sender: FDA-Public Use
  Company Number: NSADSS2003021460

PATIENT
  Age: 89 Year
  Sex: Female

DRUGS (9)
  1. RISPERDAL [Suspect]
     Indication: DRUG USE FOR UNKNOWN INDICATION
     Dosage: 0.25 MG, 1 IN 1 DAY, ORAL
     Route: 048
     Dates: start: 20030401, end: 20030422
  2. SYNTHROID [Concomitant]
  3. ASPIRIN [Concomitant]
  4. VITAMIN E [Concomitant]
  5. CALCIUM [Concomitant]
  6. PAXIL [Concomitant]
  7. MULTIVITAMIN [Concomitant]
  8. LISINOPRIL [Concomitant]
  9. TYLENOL [Concomitant]

REACTIONS (1)
  - TRANSIENT ISCHAEMIC ATTACK [None]
